FAERS Safety Report 26139831 (Version 1)
Quarter: 2025Q4

REPORT INFORMATION
  Report Type: Report from Study
  Country: EU (occurrence: EU)
  Receive Date: 20251210
  Receipt Date: 20251210
  Transmission Date: 20260118
  Serious: Yes (Other)
  Sender: ROCHE
  Company Number: EU-ROCHE-10000438689

PATIENT

DRUGS (1)
  1. TOCILIZUMAB [Suspect]
     Active Substance: TOCILIZUMAB
     Indication: Endocrine ophthalmopathy
     Route: 058
     Dates: start: 202301

REACTIONS (9)
  - Arthralgia [Unknown]
  - Flushing [Unknown]
  - Diarrhoea [Unknown]
  - Rhinitis [Unknown]
  - Abdominal pain [Unknown]
  - Arrhythmia [Unknown]
  - Leukopenia [Unknown]
  - Local reaction [Unknown]
  - Off label use [Unknown]
